FAERS Safety Report 5511775-2 (Version None)
Quarter: 2007Q4

REPORT INFORMATION
  Report Type: 
  Country: None (occurrence: None)
  Receive Date: 20071109
  Receipt Date: 20071029
  Transmission Date: 20080405
  Serious: Yes (Other)
  Sender: FDA-Public Use
  Company Number: PT-PFIZER INC-2007082667

PATIENT
  Sex: Female
  Weight: 51 kg

DRUGS (12)
  1. VFEND [Suspect]
     Indication: BRONCHOPULMONARY ASPERGILLOSIS
     Route: 042
     Dates: start: 20070404, end: 20070404
  2. VFEND [Suspect]
     Route: 048
     Dates: start: 20070405, end: 20070510
  3. VFEND [Suspect]
     Route: 048
     Dates: start: 20070511
  4. TACROLIMUS [Concomitant]
     Route: 048
  5. PREDNISOLONE [Concomitant]
     Route: 048
  6. ANTIDEPRESSANTS [Concomitant]
  7. VALGANCICLOVIR HCL [Concomitant]
     Route: 048
  8. BACTRIM [Concomitant]
     Route: 048
  9. LOSARTAN POTASSIUM [Concomitant]
     Route: 048
  10. ACETYLSALICYLIC ACID SRT [Concomitant]
     Route: 048
  11. OMEPRAZOLE [Concomitant]
  12. PRAVASTATIN [Concomitant]

REACTIONS (2)
  - DERMATITIS BULLOUS [None]
  - PSEUDOPORPHYRIA [None]
